FAERS Safety Report 4588816-2 (Version None)
Quarter: 2005Q1

REPORT INFORMATION
  Report Type: 
  Country: None (occurrence: None)
  Receive Date: 20050216
  Receipt Date: 20050127
  Transmission Date: 20050727
  Serious: Yes (Hospitalization, Other)
  Sender: FDA-Public Use
  Company Number: US_0410106363

PATIENT
  Age: 41 Year
  Sex: Male
  Weight: 112 kg

DRUGS (8)
  1. ZYPREXA [Suspect]
     Indication: DEPRESSION
     Dosage: 20 MG
     Dates: start: 19980501, end: 20030901
  2. ZYPREXA [Suspect]
     Indication: SCHIZOAFFECTIVE DISORDER
     Dosage: 20 MG
     Dates: start: 19980501, end: 20030901
  3. DEPAKOTE [Concomitant]
  4. DEPAKENE (VALPROATE SEMISODIUM) [Concomitant]
  5. ZOLOFT [Concomitant]
  6. SYNTHROID [Concomitant]
  7. BECLOMETHASONE [Concomitant]
  8. INFLUENZA VACCINE [Concomitant]

REACTIONS (22)
  - ASTHENIA [None]
  - BLOOD CHOLESTEROL ABNORMAL [None]
  - BLOOD TRIGLYCERIDES INCREASED [None]
  - CONSTIPATION [None]
  - COUGH [None]
  - DEHYDRATION [None]
  - DENTAL DISCOMFORT [None]
  - DIABETES MELLITUS [None]
  - GINGIVITIS [None]
  - HEPATITIS C [None]
  - HEPATITIS VIRAL [None]
  - HERPES ZOSTER [None]
  - HYPERGLYCAEMIC HYPEROSMOLAR NONKETOTIC SYNDROME [None]
  - HYPOAESTHESIA [None]
  - HYPOTHYROIDISM [None]
  - INCREASED APPETITE [None]
  - OBESITY [None]
  - PAIN [None]
  - PERIODONTAL OPERATION [None]
  - RASH [None]
  - UPPER RESPIRATORY TRACT INFECTION [None]
  - WEIGHT DECREASED [None]
